FAERS Safety Report 23085250 (Version 2)
Quarter: 2023Q4

REPORT INFORMATION
  Report Type: Report from Study
  Country: US (occurrence: US)
  Receive Date: 20231019
  Receipt Date: 20231223
  Transmission Date: 20240109
  Serious: Yes (Other)
  Sender: FDA-Public Use
  Company Number: US-002147023-NVSC2023US224809

PATIENT

DRUGS (1)
  1. KESIMPTA [Suspect]
     Active Substance: OFATUMUMAB
     Indication: Multiple sclerosis
     Dosage: UNK, UNKNOWN
     Route: 058
     Dates: start: 20231012

REACTIONS (3)
  - Multiple sclerosis [Unknown]
  - Condition aggravated [Unknown]
  - Influenza like illness [Unknown]
